FAERS Safety Report 5744820-X (Version None)
Quarter: 2008Q2

REPORT INFORMATION
  Report Type: 
  Country: None (occurrence: None)
  Receive Date: 20080516
  Receipt Date: 20080505
  Transmission Date: 20081010
  Serious: Yes (Hospitalization)
  Sender: FDA-Public Use
  Company Number: 234198J08USA

PATIENT
  Age: 26 Year
  Sex: Female
  Weight: 71.2147 kg

DRUGS (3)
  1. REBIF [Suspect]
     Indication: MULTIPLE SCLEROSIS
     Dosage: 44 MCG, 3 IN 1 WEEKS, SUBCUTANEOUS
     Route: 058
     Dates: start: 20080204, end: 20080428
  2. BIRTH CONTROL PILLS (ORAL CONTRACEPTIVE NOS) [Concomitant]
  3. COMPAZINE [Concomitant]

REACTIONS (4)
  - BILE DUCT OBSTRUCTION [None]
  - CHEST PAIN [None]
  - CHOLELITHIASIS [None]
  - JAUNDICE CHOLESTATIC [None]
